FAERS Safety Report 15014739 (Version 4)
Quarter: 2021Q3

REPORT INFORMATION
  Report Type: Other
  Country: JP (occurrence: JP)
  Receive Date: 20180615
  Receipt Date: 20210825
  Transmission Date: 20211014
  Serious: Yes (Hospitalization)
  Sender: FDA-Public Use
  Company Number: JP-ROCHE-2140862

PATIENT
  Age: 70 Year
  Sex: Male
  Weight: 69 kg

DRUGS (1)
  1. ATEZOLIZUMAB. [Suspect]
     Active Substance: ATEZOLIZUMAB
     Indication: NON-SMALL CELL LUNG CANCER
     Dosage: DOSAGE WAS UNCERTAIN.
     Route: 041
     Dates: start: 20180522, end: 20180522

REACTIONS (3)
  - Giant cell arteritis [Recovering/Resolving]
  - Diarrhoea [Recovered/Resolved]
  - Polyarthritis [Recovering/Resolving]

NARRATIVE: CASE EVENT DATE: 20180525
